FAERS Safety Report 15562196 (Version 9)
Quarter: 2019Q2

REPORT INFORMATION
  Report Type: Report from Study
  Country: US (occurrence: US)
  Receive Date: 20181029
  Receipt Date: 20190619
  Transmission Date: 20190711
  Serious: Yes (Other)
  Sender: FDA-Public Use
  Company Number: US-TESARO-US-2017TSO02208

PATIENT
  Age: 76 Year
  Sex: Female

DRUGS (15)
  1. ZEJULA [Suspect]
     Active Substance: NIRAPARIB
     Dosage: 100 UNK, UNK
     Dates: start: 201710
  2. ZEJULA [Suspect]
     Active Substance: NIRAPARIB
     Dosage: 100 MG, QD
     Dates: start: 201711
  3. ZEJULA [Suspect]
     Active Substance: NIRAPARIB
     Dosage: 100, MG, EVERY THIRD DAY
     Route: 048
  4. ZEJULA [Suspect]
     Active Substance: NIRAPARIB
     Dosage: 100 MG, QD
     Route: 048
     Dates: start: 20180314
  5. ZEJULA [Suspect]
     Active Substance: NIRAPARIB
     Indication: OVARIAN CANCER
     Dosage: 100 MG, QD
     Route: 048
     Dates: start: 20170720, end: 20170731
  6. ZEJULA [Suspect]
     Active Substance: NIRAPARIB
     Dosage: 200 MG, QD
     Route: 048
     Dates: start: 20170901, end: 20171003
  7. ZEJULA [Suspect]
     Active Substance: NIRAPARIB
     Dosage: 100 MG, QD
     Route: 048
  8. TRAMADOL. [Concomitant]
     Active Substance: TRAMADOL
     Indication: PRODUCT USED FOR UNKNOWN INDICATION
     Dosage: UNK
  9. ZEJULA [Suspect]
     Active Substance: NIRAPARIB
     Dosage: 300 MG, QD
     Route: 048
  10. ZEJULA [Suspect]
     Active Substance: NIRAPARIB
     Dosage: 100 MG, QD
     Route: 048
     Dates: start: 20180224
  11. GABAPENTIN. [Concomitant]
     Active Substance: GABAPENTIN
     Indication: PRODUCT USED FOR UNKNOWN INDICATION
     Dosage: UNK
  12. ZEJULA [Suspect]
     Active Substance: NIRAPARIB
     Dosage: 100 MG, QD
     Route: 048
     Dates: start: 20171023
  13. VITAMIN E [Concomitant]
     Active Substance: .ALPHA.-TOCOPHEROL
     Indication: PRODUCT USED FOR UNKNOWN INDICATION
     Dosage: UNK
  14. LORAZEPAM. [Concomitant]
     Active Substance: LORAZEPAM
     Indication: PRODUCT USED FOR UNKNOWN INDICATION
     Dosage: UNK
  15. ZEJULA [Suspect]
     Active Substance: NIRAPARIB
     Dosage: 200 MG, QD
     Route: 048
     Dates: start: 20170801

REACTIONS (41)
  - Eye irritation [Recovering/Resolving]
  - Lymphadenopathy [Recovering/Resolving]
  - Muscle twitching [Unknown]
  - Pneumonitis [Recovering/Resolving]
  - Joint injury [Unknown]
  - Carbohydrate antigen 125 increased [Unknown]
  - Fatigue [Not Recovered/Not Resolved]
  - Fall [Unknown]
  - Insomnia [Recovered/Resolved]
  - Hypoaesthesia [Recovering/Resolving]
  - Dry skin [Recovering/Resolving]
  - Influenza [Recovering/Resolving]
  - Paraesthesia [Recovering/Resolving]
  - Pain in jaw [Recovering/Resolving]
  - Hot flush [Not Recovered/Not Resolved]
  - Pain [Recovered/Resolved]
  - Dyspepsia [Recovered/Resolved]
  - Inappropriate schedule of product administration [Unknown]
  - Product dose omission [Unknown]
  - Night sweats [Recovering/Resolving]
  - Dry mouth [Recovering/Resolving]
  - Nasopharyngitis [Unknown]
  - Neuropathy peripheral [Not Recovered/Not Resolved]
  - Dry eye [Recovering/Resolving]
  - Constipation [Recovered/Resolved]
  - Feeling abnormal [Recovered/Resolved]
  - Hair texture abnormal [Not Recovered/Not Resolved]
  - Rhinorrhoea [Recovering/Resolving]
  - Alopecia [Not Recovered/Not Resolved]
  - Facial bones fracture [Unknown]
  - Memory impairment [Recovering/Resolving]
  - Emotional distress [Recovering/Resolving]
  - Performance status decreased [Unknown]
  - Vomiting [Recovered/Resolved]
  - Urinary tract infection [Not Recovered/Not Resolved]
  - Abdominal pain lower [Unknown]
  - Muscle spasms [Not Recovered/Not Resolved]
  - Hypersensitivity [Not Recovered/Not Resolved]
  - Neck pain [Recovering/Resolving]
  - Anxiety [Recovered/Resolved]
  - Nausea [Not Recovered/Not Resolved]

NARRATIVE: CASE EVENT DATE: 2017
